APPROVED DRUG PRODUCT: ACITRETIN
Active Ingredient: ACITRETIN
Strength: 17.5MG
Dosage Form/Route: CAPSULE;ORAL
Application: A202897 | Product #001 | TE Code: AB
Applicant: TEVA PHARMACEUTICALS USA
Approved: Apr 4, 2013 | RLD: No | RS: No | Type: RX